FAERS Safety Report 17285662 (Version 5)
Quarter: 2020Q1

REPORT INFORMATION
  Report Type: Spontaneous
  Country: AU (occurrence: AU)
  Receive Date: 20200117
  Receipt Date: 20200226
  Transmission Date: 20200409
  Serious: Yes (Life-Threatening)
  Sender: FDA-Public Use
  Company Number: AU-BAXTER-2020BAX000543

PATIENT
  Age: 70 Year
  Sex: Male
  Weight: 109 kg

DRUGS (8)
  1. CLEXANE [Suspect]
     Active Substance: ENOXAPARIN SODIUM
     Indication: PRODUCT USED FOR UNKNOWN INDICATION
     Dosage: THERAPEUTIC CLEXANE WITH ANTI-XA LEVELS
     Route: 058
     Dates: start: 202001
  2. FRUSEMIDE-CLARIS [Suspect]
     Active Substance: FUROSEMIDE
     Indication: FLUID OVERLOAD
     Route: 065
     Dates: start: 20200101, end: 20200107
  3. DUODART [Suspect]
     Active Substance: DUTASTERIDE\TAMSULOSIN
     Indication: PROSTATOMEGALY
     Dosage: 0.5 TO 0.4 MG
     Route: 065
     Dates: start: 20200102, end: 20200107
  4. HEPARIN SODIUM IN 0.9% SODIUM CHLORIDE [Suspect]
     Active Substance: HEPARIN SODIUM\SODIUM CHLORIDE
     Indication: PULMONARY EMBOLISM
     Dosage: RATE BETWEEN 16 TO 20 ML/HR?25000 UNITS HEPARIN SODIUM IN 0.9% SODIUM CHLORIDE AHK6001A 250ML BAG
     Route: 042
     Dates: start: 20200103, end: 20200107
  5. HEPARIN SODIUM IN 0.9% SODIUM CHLORIDE [Suspect]
     Active Substance: HEPARIN SODIUM\SODIUM CHLORIDE
     Indication: DEEP VEIN THROMBOSIS
     Dosage: VARIABLE PER APTT AT RATE OF 16 ML/HR?25000 UNITS HEPARIN SODIUM IN 0.9% SODIUM CHLORIDE AHK6001A 25
     Route: 042
     Dates: start: 20200107, end: 20200107
  6. PAROXETINE. [Suspect]
     Active Substance: PAROXETINE
     Indication: DRUG THERAPY
     Route: 065
     Dates: start: 20191228
  7. HEPARIN SODIUM IN 0.9% SODIUM CHLORIDE [Suspect]
     Active Substance: HEPARIN SODIUM\SODIUM CHLORIDE
     Dosage: AT THE RATE OF 10 TO 14 ML/HR
     Route: 042
     Dates: start: 20200114, end: 20200116
  8. ASPIRIN. [Suspect]
     Active Substance: ASPIRIN
     Indication: CARDIOVASCULAR EVENT PROPHYLAXIS
     Route: 065
     Dates: start: 20200104, end: 20200107

REACTIONS (3)
  - Haematuria [Recovered/Resolved]
  - Activated partial thromboplastin time prolonged [Recovered/Resolved]
  - Arterial haemorrhage [Recovered/Resolved]

NARRATIVE: CASE EVENT DATE: 202001
